FAERS Safety Report 6547634-6 (Version None)
Quarter: 2010Q1

REPORT INFORMATION
  Report Type: 
  Country: None (occurrence: None)
  Receive Date: 20100122
  Receipt Date: 20100112
  Transmission Date: 20100710
  Serious: Yes (Other)
  Sender: FDA-Public Use
  Company Number: CH-ABBOTT-09P-151-0614700-00

PATIENT
  Age: 31 Year
  Sex: Female

DRUGS (2)
  1. KALETRA [Suspect]
     Indication: ASYMPTOMATIC HIV INFECTION
     Dates: start: 20090526
  2. COMBIVIR [Suspect]
     Indication: ASYMPTOMATIC HIV INFECTION
     Dosage: 300MG/150MG TWICE DAILY
     Dates: start: 20090526

REACTIONS (2)
  - PREMATURE BABY [None]
  - PREMATURE RUPTURE OF MEMBRANES [None]
